FAERS Safety Report 12532426 (Version 2)
Quarter: 2016Q3

REPORT INFORMATION
  Report Type: Report from Study
  Country: US (occurrence: US)
  Receive Date: 20160706
  Receipt Date: 20160719
  Transmission Date: 20161109
  Serious: Yes (Hospitalization)
  Sender: FDA-Public Use
  Company Number: US-ACTELION-A-US2015-115596

PATIENT
  Age: 4 Year
  Sex: Female

DRUGS (3)
  1. TRACLEER [Suspect]
     Active Substance: BOSENTAN
     Indication: PULMONARY ARTERIAL HYPERTENSION
     Dosage: 62.5 MG, BID
     Route: 048
     Dates: start: 2014
  2. REMODULIN [Concomitant]
     Active Substance: TREPROSTINIL
     Dosage: 117 NG/KG, PER MIN
  3. SILDENAFIL. [Concomitant]
     Active Substance: SILDENAFIL
     Dosage: 20 MG, TID

REACTIONS (9)
  - Device related infection [Unknown]
  - Pyrexia [Unknown]
  - Catheter site haemorrhage [Unknown]
  - Application site rash [Unknown]
  - Immunodeficiency [Unknown]
  - Enterobacter bacteraemia [Unknown]
  - Diarrhoea [Unknown]
  - Catheter site erythema [Unknown]
  - Infusion site pain [Unknown]

NARRATIVE: CASE EVENT DATE: 20160516
